FAERS Safety Report 11923877 (Version 2)
Quarter: 2017Q1

REPORT INFORMATION
  Report Type: Spontaneous
  Country: US (occurrence: US)
  Receive Date: 20160118
  Receipt Date: 20170125
  Transmission Date: 20170428
  Serious: Yes (Other)
  Sender: FDA-Public Use
  Company Number: US-JNJFOC-20160107837

PATIENT
  Sex: Male
  Weight: 103 kg

DRUGS (1)
  1. ZYTIGA [Suspect]
     Active Substance: ABIRATERONE ACETATE
     Indication: PROSTATE CANCER METASTATIC
     Route: 048
     Dates: start: 201501

REACTIONS (2)
  - Product difficult to swallow [Not Recovered/Not Resolved]
  - Tracheostomy [Not Recovered/Not Resolved]
